FAERS Safety Report 17429167 (Version 1)
Quarter: 2020Q1

REPORT INFORMATION
  Report Type: Spontaneous
  Country: US (occurrence: US)
  Receive Date: 20200214
  Receipt Date: 20200214
  Transmission Date: 20200409
  Serious: Yes (Hospitalization)
  Sender: FDA-Public Use
  Company Number: None

PATIENT
  Age: 43 Year
  Sex: Female
  Weight: 100 kg

DRUGS (11)
  1. FENOFIBRATE. [Concomitant]
     Active Substance: FENOFIBRATE
  2. BUPROPION. [Concomitant]
     Active Substance: BUPROPION
  3. PROPRANOLOL [Concomitant]
     Active Substance: PROPRANOLOL HYDROCHLORIDE
  4. METFORMIN [Concomitant]
     Active Substance: METFORMIN HYDROCHLORIDE
  5. ATORVASTATIN [Concomitant]
     Active Substance: ATORVASTATIN
  6. SITAGLIPTIN [Concomitant]
     Active Substance: SITAGLIPTIN
  7. CANAGLIFLOZIN [Suspect]
     Active Substance: CANAGLIFLOZIN
     Indication: TYPE 2 DIABETES MELLITUS
     Route: 048
     Dates: start: 20200207, end: 20200212
  8. PREGABALIN. [Concomitant]
     Active Substance: PREGABALIN
  9. CERTIZINE [Concomitant]
  10. LISINOPRIL. [Concomitant]
     Active Substance: LISINOPRIL
  11. QUETIAPINE. [Concomitant]
     Active Substance: QUETIAPINE

REACTIONS (16)
  - Myalgia [None]
  - Flank pain [None]
  - Nausea [None]
  - Vomiting [None]
  - Infrequent bowel movements [None]
  - Acute kidney injury [None]
  - Gastritis [None]
  - Retching [None]
  - Lactic acidosis [None]
  - Leukocytosis [None]
  - Biliary tract disorder [None]
  - Dehydration [None]
  - Euglycaemic diabetic ketoacidosis [None]
  - Blood potassium increased [None]
  - Pancreatitis [None]
  - Pneumonia [None]

NARRATIVE: CASE EVENT DATE: 20200212
